FAERS Safety Report 7646962-0 (Version None)
Quarter: 2011Q3

REPORT INFORMATION
  Report Type: 
  Country: None (occurrence: None)
  Receive Date: 20110801
  Receipt Date: 20110727
  Transmission Date: 20111222
  Serious: Yes (Hospitalization)
  Sender: FDA-Public Use
  Company Number: US-JNJFOC-20110406314

PATIENT
  Sex: Male

DRUGS (25)
  1. ESCITALOPRAM [Concomitant]
     Indication: DEPRESSION
     Route: 048
     Dates: start: 20050510
  2. MULTI-VITAMINS [Concomitant]
     Indication: GENERAL PHYSICAL CONDITION
     Route: 048
     Dates: start: 20061128
  3. ENOXAPARIN SODIUM [Concomitant]
     Indication: PULMONARY EMBOLISM
     Dosage: 100 MG/ML SUBCUTANEOUS SOLUTION
     Route: 058
     Dates: start: 20101015
  4. PREDNISONE [Suspect]
     Route: 048
     Dates: start: 20080818
  5. FISH OIL [Concomitant]
     Indication: GENERAL PHYSICAL CONDITION
     Route: 048
     Dates: start: 20080304
  6. GABAPENTIN [Concomitant]
     Indication: CANCER PAIN
     Route: 048
     Dates: start: 20101223
  7. MILK OF MAGNESIA TAB [Concomitant]
     Indication: ABDOMINAL PAIN
     Route: 048
     Dates: start: 20110401
  8. ABIRATERONE ACETATE [Suspect]
     Indication: PROSTATE CANCER METASTATIC
     Route: 048
     Dates: start: 20101029, end: 20110411
  9. LEUPROLIDE ACETATE [Concomitant]
     Indication: PROSTATE CANCER
     Route: 030
     Dates: start: 20080818
  10. AUGMENTIN '125' [Concomitant]
     Indication: PROPHYLAXIS
     Route: 048
     Dates: start: 20110301
  11. ESCITALOPRAM [Concomitant]
     Indication: ANXIETY
     Route: 048
     Dates: start: 20050510
  12. TRAMADOL HCL [Concomitant]
     Indication: CANCER PAIN
     Route: 048
     Dates: start: 20101001
  13. VITAMIN D [Concomitant]
     Indication: GENERAL PHYSICAL CONDITION
     Route: 048
     Dates: start: 20050510
  14. LEUPROLIDE ACETATE [Concomitant]
     Indication: HORMONE THERAPY
     Route: 030
     Dates: start: 20040213
  15. HYDROCODONE BITARTRATE AND ACETAMINOPHEN [Concomitant]
     Indication: CANCER PAIN
     Route: 048
     Dates: start: 20090401
  16. ACETAMINOPHEN [Concomitant]
     Indication: BACK PAIN
     Route: 048
     Dates: start: 20080811
  17. EPIVIR-HBV [Concomitant]
     Indication: HEPATITIS B
     Route: 048
     Dates: start: 20051227
  18. LEUPROLIDE ACETATE [Concomitant]
     Route: 030
     Dates: start: 20040213
  19. LEUPROLIDE ACETATE [Concomitant]
     Route: 030
     Dates: start: 20080818
  20. ASCORBIC ACID [Concomitant]
     Indication: GENERAL PHYSICAL CONDITION
     Route: 048
     Dates: start: 20070410
  21. ABIRATERONE ACETATE [Suspect]
     Route: 048
  22. PREDNISONE [Suspect]
     Indication: PROSTATE CANCER METASTATIC
     Route: 048
     Dates: start: 20101029
  23. ACETAMINOPHEN [Concomitant]
     Indication: PELVIC PAIN
     Route: 048
     Dates: start: 20080811
  24. CALCIUM ACETATE [Concomitant]
     Indication: GENERAL PHYSICAL CONDITION
     Route: 048
     Dates: start: 20050510
  25. GABAPENTIN [Concomitant]
     Route: 048
     Dates: start: 20100903, end: 20101223

REACTIONS (1)
  - SEPSIS [None]
